FAERS Safety Report 7121190-6 (Version None)
Quarter: 2010Q4

REPORT INFORMATION
  Report Type: 
  Country: None (occurrence: None)
  Receive Date: 20101124
  Receipt Date: 20101111
  Transmission Date: 20110411
  Serious: Yes (Hospitalization, Other)
  Sender: FDA-Public Use
  Company Number: PHEH2006US08130

PATIENT
  Sex: Male
  Weight: 69 kg

DRUGS (52)
  1. ZOMETA [Suspect]
  2. AREDIA [Suspect]
     Dosage: MONTHLY
     Route: 042
  3. PREDNISONE [Suspect]
     Dosage: 20 MG QD
  4. TETANUS VACCINE ^PASTEUR^ [Concomitant]
  5. BUSPAR [Concomitant]
  6. PROPOXYPHENE NAPSYLATE W/ ACETAMINOPHEN [Concomitant]
  7. METHADONE HCL [Concomitant]
     Dosage: 150 MG QD
  8. ZOLOFT [Concomitant]
     Dosage: 200 MG QD
  9. CELEBREX [Concomitant]
  10. ACETAMINOPHEN AND HYDROCODONE BITARTRATE [Concomitant]
  11. KLONOPIN [Concomitant]
  12. ELAVIL [Concomitant]
  13. AUGMENTIN '125' [Concomitant]
  14. DIGOXIN [Concomitant]
  15. MIACALCIN [Concomitant]
     Indication: OSTEOPOROSIS
     Dosage: ALTERNATING NOSTRILS
  16. WELLBUTRIN [Concomitant]
     Dosage: 150 MG QD
  17. ACTONEL [Concomitant]
     Indication: OSTEOPOROSIS
     Dosage: 5 MG QD
  18. PREVACID [Concomitant]
     Dosage: 30 MG QD
  19. PROTONIX [Concomitant]
     Dosage: 40 MG QD
  20. VIOXX [Concomitant]
     Dosage: 25 MG QD
  21. TESTOSTERONE [Concomitant]
     Dosage: 5 MG QD
  22. CARDIZEM CD [Concomitant]
     Dosage: 180 MG QD
  23. CANDESARTAN CILEXETIL [Concomitant]
     Dosage: 60 MG QD
  24. PENICILLIN [Concomitant]
     Dosage: 500 MG, BID
  25. BACTRIM [Concomitant]
     Dosage: TWICE DAILY ON M, TH
  26. CALCIUM [Concomitant]
     Dosage: 1500 MG DAILY
  27. VITAMIN D [Concomitant]
     Dosage: 400 IU DAILY
  28. CHEMOTHERAPEUTICS NOS [Concomitant]
  29. REMICADE [Concomitant]
  30. METHOTREXATE [Concomitant]
  31. EFFEXOR [Concomitant]
  32. FOLIC ACID [Concomitant]
  33. RITALIN [Concomitant]
  34. SENOKOT                                 /USA/ [Concomitant]
  35. MULTI-VITAMINS [Concomitant]
  36. TRAZODONE [Concomitant]
  37. ATENOLOL [Concomitant]
  38. MIDRIN [Concomitant]
  39. OXYCODONE HCL [Concomitant]
  40. OXYCONTIN [Concomitant]
  41. PERCOCET [Concomitant]
  42. PERI-COLACE [Concomitant]
  43. ASPIRIN [Concomitant]
  44. FRAGMIN [Concomitant]
  45. PLAQUENIL [Concomitant]
  46. HUMIRA [Concomitant]
  47. DETROL                                  /USA/ [Concomitant]
  48. NYSTATIN [Concomitant]
  49. CLONAZEPAM [Concomitant]
  50. CONCERTA [Concomitant]
  51. EFFEXOR XR [Concomitant]
  52. ZESTRIL [Concomitant]

REACTIONS (92)
  - ACROCHORDON [None]
  - AGITATION [None]
  - ANAEMIA [None]
  - ANGER [None]
  - ANIMAL BITE [None]
  - ANOGENITAL WARTS [None]
  - APPENDICECTOMY [None]
  - ASTHENIA [None]
  - ATRIAL FIBRILLATION [None]
  - AZOTAEMIA [None]
  - BACK INJURY [None]
  - BACK PAIN [None]
  - BASAL CELL CARCINOMA [None]
  - BLOOD ALBUMIN DECREASED [None]
  - BLOOD CALCIUM DECREASED [None]
  - BLOOD CREATINE PHOSPHOKINASE INCREASED [None]
  - BONE DISORDER [None]
  - BONE GRAFT [None]
  - BONE NEOPLASM MALIGNANT [None]
  - BONE PAIN [None]
  - BUNION [None]
  - BUNION OPERATION [None]
  - CARDIAC DISORDER [None]
  - CATARACT [None]
  - CATARACT OPERATION [None]
  - CELLULITIS [None]
  - CENTRAL VENOUS CATHETERISATION [None]
  - CERVICOBRACHIAL SYNDROME [None]
  - CHEST PAIN [None]
  - CONFUSIONAL STATE [None]
  - CONSTIPATION [None]
  - CYST [None]
  - DEFORMITY [None]
  - DEHYDRATION [None]
  - DEPRESSION [None]
  - DISTURBANCE IN ATTENTION [None]
  - DIZZINESS [None]
  - DRUG ABUSE [None]
  - DRY EYE [None]
  - FALL [None]
  - FIBROMYALGIA [None]
  - FISTULA [None]
  - FRACTURE [None]
  - GENERALISED ANXIETY DISORDER [None]
  - GINGIVAL RECESSION [None]
  - GLOSSODYNIA [None]
  - HAEMATURIA [None]
  - HERPES ZOSTER [None]
  - HIP ARTHROPLASTY [None]
  - HYPERBARIC OXYGEN THERAPY [None]
  - HYPERHIDROSIS [None]
  - HYPERTENSION [None]
  - HYPOGONADISM [None]
  - IMPAIRED HEALING [None]
  - KNEE ARTHROPLASTY [None]
  - LIMB INJURY [None]
  - LIP DISORDER [None]
  - MAJOR DEPRESSION [None]
  - MASTICATION DISORDER [None]
  - MULTIPLE FRACTURES [None]
  - MULTIPLE MYELOMA [None]
  - MUSCULOSKELETAL PAIN [None]
  - NECK PAIN [None]
  - NEOPLASM MALIGNANT [None]
  - NEURALGIA [None]
  - OEDEMA PERIPHERAL [None]
  - OPEN REDUCTION OF FRACTURE [None]
  - ORAL DISORDER [None]
  - OSTEITIS [None]
  - OSTEOARTHRITIS [None]
  - OSTEONECROSIS OF JAW [None]
  - OSTEOPOROSIS [None]
  - PAIN [None]
  - PALLOR [None]
  - PYREXIA [None]
  - RADIUS FRACTURE [None]
  - RASH [None]
  - RHEUMATOID ARTHRITIS [None]
  - RIB FRACTURE [None]
  - SCAR [None]
  - SEQUESTRECTOMY [None]
  - SHOULDER ARTHROPLASTY [None]
  - SKIN PAPILLOMA [None]
  - SKIN ULCER [None]
  - SPINAL FRACTURE [None]
  - STAPHYLOCOCCAL INFECTION [None]
  - STEM CELL TRANSPLANT [None]
  - TONGUE DISCOLOURATION [None]
  - TOOTH INJURY [None]
  - TREMOR [None]
  - VISION BLURRED [None]
  - WEIGHT DECREASED [None]
